FAERS Safety Report 11525783 (Version 2)
Quarter: 2015Q3

REPORT INFORMATION
  Report Type: Other
  Country: US (occurrence: US)
  Receive Date: 20150918
  Receipt Date: 20150922
  Transmission Date: 20151125
  Serious: Yes (Other)
  Sender: FDA-Public Use
  Company Number: US-LUNDBECK-DKLU2004222

PATIENT

DRUGS (1)
  1. VIGABATRIN (TABLET) [Suspect]
     Active Substance: VIGABATRIN
     Indication: EPILEPSY
     Route: 065

REACTIONS (2)
  - Retinal disorder [Unknown]
  - Toxicity to various agents [Unknown]
